FAERS Safety Report 4373766-7 (Version None)
Quarter: 2004Q2

REPORT INFORMATION
  Report Type: 
  Country: None (occurrence: None)
  Receive Date: 20040603
  Receipt Date: 20040520
  Transmission Date: 20050107
  Serious: Yes (Hospitalization)
  Sender: FDA-Public Use
  Company Number: K200400777

PATIENT
  Age: 71 Year
  Sex: Male

DRUGS (3)
  1. ALTACE [Suspect]
     Dosage: 2.5 MG, QID, ORAL
     Route: 048
  2. ALDALIX(FUROSEMIDE, SPIRONOLACTONE) CAPSULE, 1U [Suspect]
     Dosage: 1U, QD, ORAL
     Route: 048
  3. DIGOXIN [Suspect]
     Dosage: 0.125 MG, QD, ORAL
     Route: 048

REACTIONS (8)
  - ARRHYTHMIA SUPRAVENTRICULAR [None]
  - CONDITION AGGRAVATED [None]
  - DEHYDRATION [None]
  - HYPERKALAEMIA [None]
  - LEFT VENTRICULAR FAILURE [None]
  - LUNG INFECTION [None]
  - OVERDOSE [None]
  - VOMITING [None]
